FAERS Safety Report 9475982 (Version 1)
Quarter: 2013Q3

REPORT INFORMATION
  Report Type: Spontaneous
  Country: CM (occurrence: None)
  Receive Date: 20130821
  Receipt Date: 20130821
  Transmission Date: 20140515
  Serious: Yes (Hospitalization)
  Sender: FDA-Public Use
  Company Number: 2013P108525

PATIENT
  Age: 8 Year
  Sex: Male

DRUGS (2)
  1. ALBENDAZOLE [Suspect]
     Indication: FILARIASIS LYMPHATIC
     Dosage: 1 TABLET; QD; PO
     Route: 048
     Dates: start: 2012
  2. MECTIZAN (IVERMECTIN) [Suspect]
     Indication: FILARIASIS LYMPHATIC
     Route: 048

REACTIONS (2)
  - Skin ulcer [None]
  - Stevens-Johnson syndrome [None]
